FAERS Safety Report 9979535 (Version 1)
Quarter: 2014Q1

REPORT INFORMATION
  Report Type: Report from Study
  Country: US (occurrence: US)
  Receive Date: 20140306
  Receipt Date: 20140306
  Transmission Date: 20141002
  Serious: No
  Sender: FDA-Public Use
  Company Number: US-ABBVIE-13P-163-1168302-00

PATIENT
  Age: 68 Year
  Sex: Male
  Weight: 74.46 kg

DRUGS (2)
  1. HUMIRA [Suspect]
     Indication: CROHN^S DISEASE
  2. NEURONTIN [Concomitant]
     Indication: ARTHRITIS

REACTIONS (6)
  - Pain [Recovered/Resolved]
  - Increased upper airway secretion [Recovered/Resolved]
  - Middle ear effusion [Recovered/Resolved]
  - Headache [Recovered/Resolved]
  - Respiratory tract infection [Recovered/Resolved]
  - Pyrexia [Recovered/Resolved]
